FAERS Safety Report 23151815 (Version 1)
Quarter: 2023Q4

REPORT INFORMATION
  Report Type: Spontaneous
  Country: US (occurrence: US)
  Receive Date: 20231107
  Receipt Date: 20231107
  Transmission Date: 20240110
  Serious: Yes (Other)
  Sender: FDA-Public Use
  Company Number: US-BAXTER-2023BAX034601

PATIENT
  Sex: Female

DRUGS (2)
  1. ARTISS [Suspect]
     Active Substance: FIBRINOGEN HUMAN\THROMBIN HUMAN
     Indication: Tissue sealing
     Dosage: UNK
     Route: 065
     Dates: start: 20231025
  2. ARTISS [Suspect]
     Active Substance: FIBRINOGEN HUMAN\THROMBIN HUMAN
     Indication: Tissue sealing
     Dosage: UNK
     Route: 065
     Dates: start: 20231025

REACTIONS (4)
  - Type I hypersensitivity [Recovering/Resolving]
  - Tissue discolouration [Recovering/Resolving]
  - Emotional distress [Recovering/Resolving]
  - Urticaria [Recovering/Resolving]

NARRATIVE: CASE EVENT DATE: 20231025
